FAERS Safety Report 6157121-5 (Version None)
Quarter: 2009Q2

REPORT INFORMATION
  Report Type: 
  Country: None (occurrence: None)
  Receive Date: 20090416
  Receipt Date: 20090410
  Transmission Date: 20091009
  Serious: Yes (Other)
  Sender: FDA-Public Use
  Company Number: JP-ASTRAZENECA-2009AP02021

PATIENT
  Age: 64 Year
  Sex: Female

DRUGS (4)
  1. ARIMIDEX [Suspect]
     Indication: BREAST CANCER
     Route: 048
     Dates: start: 20041206, end: 20081201
  2. LOXONIN [Concomitant]
     Dosage: DOSE UNKNOWN
     Route: 048
     Dates: start: 20081219
  3. MUCOSTA [Concomitant]
     Dosage: DOSE UNKNOWN
     Route: 048
     Dates: start: 20081219
  4. OPALMON [Concomitant]
     Route: 048
     Dates: start: 20080725

REACTIONS (1)
  - MUSCULAR WEAKNESS [None]
